FAERS Safety Report 5521546-9 (Version None)
Quarter: 2007Q4

REPORT INFORMATION
  Report Type: 
  Country: None (occurrence: None)
  Receive Date: 20071115
  Receipt Date: 20071106
  Transmission Date: 20080405
  Serious: Yes (Other)
  Sender: FDA-Public Use
  Company Number: 2007JP005074

PATIENT
  Age: 69 Year
  Sex: Female

DRUGS (3)
  1. PROGRAF [Suspect]
     Indication: RHEUMATOID ARTHRITIS
     Dosage: ORAL
     Route: 048
  2. METHOTREXATE PER ORAL NOS [Concomitant]
  3. PREDNISOLONE [Concomitant]

REACTIONS (3)
  - BRAIN ABSCESS [None]
  - BRAIN OEDEMA [None]
  - NOCARDIOSIS [None]
